FAERS Safety Report 5142855-1 (Version None)
Quarter: 2006Q4

REPORT INFORMATION
  Report Type: 
  Country: None (occurrence: None)
  Receive Date: 20061030
  Receipt Date: 20061018
  Transmission Date: 20070319
  Serious: Yes (Hospitalization)
  Sender: FDA-Public Use
  Company Number: IMP_2490_2006

PATIENT
  Age: 15 Year
  Sex: Male

DRUGS (3)
  1. MINOCYCLINE HCL [Suspect]
     Indication: ACNE
     Dosage: 100 MG QDAY PO
     Route: 048
  2. IBUPROFEN [Concomitant]
  3. NAPROXEN [Concomitant]

REACTIONS (21)
  - ACNE [None]
  - ACTIVATED PARTIAL THROMBOPLASTIN TIME PROLONGED [None]
  - ANTINUCLEAR ANTIBODY INCREASED [None]
  - AUTOIMMUNE HEPATITIS [None]
  - CONTUSION [None]
  - DOUBLE STRANDED DNA ANTIBODY [None]
  - EPISTAXIS [None]
  - FIBROMUSCULAR DYSPLASIA [None]
  - HEPATIC CIRRHOSIS [None]
  - HISTONE ANTIBODY POSITIVE [None]
  - HYPERTENSION [None]
  - INCREASED TENDENCY TO BRUISE [None]
  - INTERNATIONAL NORMALISED RATIO INCREASED [None]
  - KIDNEY ENLARGEMENT [None]
  - LIVER PALPABLE SUBCOSTAL [None]
  - PETECHIAE [None]
  - PLATELET COUNT DECREASED [None]
  - PROTHROMBIN TIME PROLONGED [None]
  - RENAL ARTERY STENOSIS [None]
  - RENAL IMPAIRMENT [None]
  - SPLENOMEGALY [None]
